FAERS Safety Report 25638103 (Version 1)
Quarter: 2025Q3

REPORT INFORMATION
  Report Type: Spontaneous
  Country: EU (occurrence: EU)
  Receive Date: 20250804
  Receipt Date: 20250804
  Transmission Date: 20251020
  Serious: Yes (Other)
  Sender: AMGEN
  Company Number: EU-AMGEN-ESPSP2025151617

PATIENT
  Age: 38 Year
  Sex: Female

DRUGS (6)
  1. FILGRASTIM [Suspect]
     Active Substance: FILGRASTIM
     Indication: Haematopoietic stem cell mobilisation
     Dosage: UNK, QD (5-10 MICROGRAM/KG/DAY)
     Route: 065
  2. CYCLOPHOSPHAMIDE [Concomitant]
     Active Substance: CYCLOPHOSPHAMIDE
     Indication: Haematopoietic stem cell mobilisation
     Route: 040
  3. METHYLPREDNISOLONE [Concomitant]
     Active Substance: METHYLPREDNISOLONE
     Route: 040
  4. RITUXIMAB [Concomitant]
     Active Substance: RITUXIMAB
  5. RITUXIMAB [Concomitant]
     Active Substance: RITUXIMAB
     Dosage: UNK UNK, Q2WK (1 G + 1 G, 2 WEEKS APART)
  6. THYMOCYTE IMMUNE GLOBULIN NOS [Concomitant]
     Active Substance: THYMOCYTE IMMUNE GLOBULIN NOS

REACTIONS (2)
  - Fallopian tube cancer [Recovering/Resolving]
  - Cerebellar atrophy [Recovering/Resolving]
